FAERS Safety Report 12547790 (Version 1)
Quarter: 2016Q3

REPORT INFORMATION
  Report Type: Spontaneous
  Country: US (occurrence: US)
  Receive Date: 20160712
  Receipt Date: 20160712
  Transmission Date: 20161109
  Serious: No
  Sender: FDA-Public Use
  Company Number: US-TEVA-671401USA

PATIENT
  Age: 45 Year
  Sex: Female

DRUGS (3)
  1. BACLOFEN. [Concomitant]
     Active Substance: BACLOFEN
  2. TRAMADOL. [Concomitant]
     Active Substance: TRAMADOL
  3. COPAXONE [Suspect]
     Active Substance: GLATIRAMER ACETATE
     Indication: MULTIPLE SCLEROSIS
     Dosage: 40MG
     Route: 058
     Dates: start: 20160608

REACTIONS (1)
  - Fall [Unknown]

NARRATIVE: CASE EVENT DATE: 201606
